FAERS Safety Report 4577560-3 (Version None)
Quarter: 2005Q1

REPORT INFORMATION
  Report Type: 
  Country: None (occurrence: None)
  Receive Date: 20050208
  Receipt Date: 20050127
  Transmission Date: 20050727
  Serious: No
  Sender: FDA-Public Use
  Company Number: 2005AC00172

PATIENT
  Sex: Male

DRUGS (4)
  1. MERONEM [Suspect]
  2. TEBRAZID [Concomitant]
  3. NICOTIBINE [Concomitant]
  4. RIFADIN [Concomitant]

REACTIONS (1)
  - EPILEPSY [None]
